FAERS Safety Report 24971670 (Version 1)
Quarter: 2025Q1

REPORT INFORMATION
  Report Type: Spontaneous
  Country: US (occurrence: None)
  Receive Date: 20250214
  Receipt Date: 20250214
  Transmission Date: 20250408
  Serious: Yes (Life-Threatening, Hospitalization)
  Sender: FDA-CTU
  Company Number: None

PATIENT
  Age: 84 Year
  Sex: Male
  Weight: 79 kg

DRUGS (12)
  1. BRUKINSA [Suspect]
     Active Substance: ZANUBRUTINIB
     Indication: Chronic lymphocytic leukaemia
     Dosage: FREQUENCY : TWICE A DAY;?
     Route: 048
     Dates: start: 20250202, end: 20250212
  2. ELIQUIS [Concomitant]
     Active Substance: APIXABAN
     Dates: start: 20241204
  3. diclofenac 1% gel- 2g 4x a day [Concomitant]
     Dates: start: 20250117
  4. dicyclomine 20mg TID [Concomitant]
     Dates: start: 20250204
  5. JARDIANCE [Concomitant]
     Active Substance: EMPAGLIFLOZIN
     Dates: start: 20240731
  6. fluticasone 50mcg/spray daily [Concomitant]
     Dates: start: 20250118
  7. folic acid 1mg daily [Concomitant]
     Dates: start: 20250118
  8. furosemide 20mg daily PRN leg swelling [Concomitant]
     Dates: start: 20240731
  9. oxycodone 5mg q6h PRN pain [Concomitant]
     Dates: start: 20250205
  10. midodrine 2.5mg BID PRN low BP [Concomitant]
     Dates: start: 20250117
  11. clonazepam 0.5mg qhs PRN insomnia [Concomitant]
  12. ipratropium 42mcg nasal spray daily PRN rhinitis [Concomitant]

REACTIONS (1)
  - Toxic epidermal necrolysis [None]

NARRATIVE: CASE EVENT DATE: 20250212
